FAERS Safety Report 11945382 (Version 1)
Quarter: 2016Q1

REPORT INFORMATION
  Report Type: Spontaneous
  Country: US (occurrence: US)
  Receive Date: 20160125
  Receipt Date: 20160125
  Transmission Date: 20160526
  Serious: No
  Sender: FDA-Public Use
  Company Number: US-DUCHESNAY INC.-1046872

PATIENT
  Age: 31 Year
  Sex: Female

DRUGS (1)
  1. DICLEGIS [Suspect]
     Active Substance: DOXYLAMINE SUCCINATE\PYRIDOXINE HYDROCHLORIDE
     Indication: VOMITING IN PREGNANCY
     Route: 048

REACTIONS (3)
  - Drug ineffective [None]
  - Prescribed overdose [None]
  - Exposure during pregnancy [None]

NARRATIVE: CASE EVENT DATE: 20160104
